FAERS Safety Report 19167426 (Version 1)
Quarter: 2021Q2

REPORT INFORMATION
  Report Type: Spontaneous
  Country: BR (occurrence: BR)
  Receive Date: 20210422
  Receipt Date: 20210422
  Transmission Date: 20210717
  Serious: Yes (Other)
  Sender: FDA-Public Use
  Company Number: BR-ROCHE-2813549

PATIENT
  Sex: Female

DRUGS (7)
  1. RIVOTRIL [Suspect]
     Active Substance: CLONAZEPAM
     Indication: SLEEP DISORDER THERAPY
     Route: 065
  2. VITAMIN C [Concomitant]
     Active Substance: ASCORBIC ACID
  3. VENAFLON [Concomitant]
  4. FLUOXETINE [Concomitant]
     Active Substance: FLUOXETINE HYDROCHLORIDE
  5. ANSITEC [Concomitant]
     Active Substance: BUSPIRONE HYDROCHLORIDE
  6. OLIGOVIT [Concomitant]
  7. DAFLON [Concomitant]

REACTIONS (9)
  - Drug dependence [Unknown]
  - Tremor [Unknown]
  - Headache [Unknown]
  - Nightmare [Unknown]
  - Off label use [Unknown]
  - Thrombosis [Unknown]
  - Stress [Unknown]
  - Hallucination [Unknown]
  - Anxiety [Unknown]
